FAERS Safety Report 8994656 (Version 1)
Quarter: 2012Q4

REPORT INFORMATION
  Report Type: Spontaneous
  Country: US (occurrence: None)
  Receive Date: 20121228
  Receipt Date: 20121228
  Transmission Date: 20130627
  Serious: Yes (Other)
  Sender: FDA-Public Use
  Company Number: None

PATIENT

DRUGS (1)
  1. CLOPIDOGREL [Suspect]

REACTIONS (3)
  - Product substitution issue [None]
  - Epistaxis [None]
  - Product quality issue [None]
